FAERS Safety Report 16954611 (Version 1)
Quarter: 2019Q4

REPORT INFORMATION
  Report Type: Spontaneous
  Country: NL (occurrence: NL)
  Receive Date: 20191024
  Receipt Date: 20191024
  Transmission Date: 20200122
  Serious: Yes (Hospitalization)
  Sender: FDA-Public Use
  Company Number: NL-TEVA-2019-NL-1125948

PATIENT
  Age: 49 Year
  Sex: Female

DRUGS (1)
  1. ATENOLOL TABLET, 25 MG (MILLIGRAM) // TEVA [Suspect]
     Active Substance: ATENOLOL
     Indication: ARRHYTHMIA
     Dosage: 1 MEAL PER DAY1 TABLET, 25 MG
     Dates: start: 20190819, end: 20190820

REACTIONS (3)
  - Cyanosis [Recovered/Resolved]
  - Therapeutic response unexpected [Recovered/Resolved]
  - Arrhythmia [Recovered/Resolved]

NARRATIVE: CASE EVENT DATE: 20190819
